FAERS Safety Report 12901084 (Version 1)
Quarter: 2016Q4

REPORT INFORMATION
  Report Type: Spontaneous
  Country: GB (occurrence: GB)
  Receive Date: 20161101
  Receipt Date: 20161101
  Transmission Date: 20170207
  Serious: Yes (Other)
  Sender: FDA-Public Use
  Company Number: GB-MYLANLABS-2016M1046010

PATIENT

DRUGS (2)
  1. WARFARIN [Suspect]
     Active Substance: WARFARIN
     Indication: PRODUCT USED FOR UNKNOWN INDICATION
     Dosage: UNK (TAKING FROM 9 YEARS AT AN UNKNOWN FREQUENCY)
     Route: 065
  2. STREPSILS EXTRA [Suspect]
     Active Substance: HEXYLRESORCINOL
     Dosage: UNK
     Route: 065

REACTIONS (1)
  - International normalised ratio fluctuation [Unknown]
